FAERS Safety Report 7470536-8 (Version None)
Quarter: 2011Q2

REPORT INFORMATION
  Report Type: 
  Country: None (occurrence: None)
  Receive Date: 20110510
  Receipt Date: 20110428
  Transmission Date: 20111010
  Serious: Yes (Life-Threatening, Hospitalization, Other)
  Sender: FDA-Public Use
  Company Number: US-ACTELION-A-US2010-35993

PATIENT

DRUGS (8)
  1. POTASSIUM CHLORIDE [Concomitant]
  2. REVATIO [Concomitant]
  3. METOLAZONE [Suspect]
  4. SPIRONOLACTONE [Concomitant]
  5. WARFARIN [Concomitant]
  6. EPOPROSTENOL SODIUM [Concomitant]
     Indication: PULMONARY ARTERIAL HYPERTENSION
  7. TRACLEER [Suspect]
     Indication: PULMONARY ARTERIAL HYPERTENSION
     Dosage: UNK
     Route: 048
     Dates: start: 20090101
  8. LASIX [Suspect]

REACTIONS (2)
  - HYPOKALAEMIA [None]
  - BLOOD POTASSIUM DECREASED [None]
